FAERS Safety Report 23370223 (Version 1)
Quarter: 2024Q1

REPORT INFORMATION
  Report Type: Spontaneous
  Country: FR (occurrence: FR)
  Receive Date: 20240105
  Receipt Date: 20240105
  Transmission Date: 20240410
  Serious: Yes (Other)
  Sender: FDA-Public Use
  Company Number: None

PATIENT
  Age: 56 Year
  Sex: Male
  Weight: 70 kg

DRUGS (3)
  1. PEMBROLIZUMAB [Suspect]
     Active Substance: PEMBROLIZUMAB
     Indication: Lung adenocarcinoma recurrent
     Dosage: 500 MG/M2 OR 950 MG IN THE 1ST TREATMENT, THEN 700 MG IN THE 2ND AND 3RD TREATMENT
     Route: 042
     Dates: start: 20230821, end: 20231012
  2. CARBOPLATIN [Suspect]
     Active Substance: CARBOPLATIN
     Indication: Lung adenocarcinoma recurrent
     Dosage: 500 MG/M2 OR 950 MG IN THE 1ST TREATMENT, THEN 700 MG IN THE 2ND AND 3RD TREATMENT
     Route: 042
     Dates: start: 20230821, end: 20231012
  3. PEMETREXED [Suspect]
     Active Substance: PEMETREXED
     Indication: Lung adenocarcinoma recurrent
     Dosage: 500 MG/M2 OR 950 MG IN THE 1ST TREATMENT, THEN 700 MG IN THE 2ND AND 3RD TREATMENT
     Route: 042
     Dates: start: 20230821, end: 20231012

REACTIONS (2)
  - Neutropenia [Not Recovered/Not Resolved]
  - Thrombocytopenia [Not Recovered/Not Resolved]

NARRATIVE: CASE EVENT DATE: 20231024
